FAERS Safety Report 24346593 (Version 1)
Quarter: 2024Q3

REPORT INFORMATION
  Report Type: Spontaneous
  Country: FR (occurrence: FR)
  Receive Date: 20240921
  Receipt Date: 20240921
  Transmission Date: 20241017
  Serious: Yes (Disabling, Other)
  Sender: AUROBINDO
  Company Number: FR-AFSSAPS-CF2023000344

PATIENT
  Age: 29 Year
  Sex: Female

DRUGS (1)
  1. AZITHROMYCIN [Suspect]
     Active Substance: AZITHROMYCIN
     Indication: Tonsillitis
     Dosage: 500 MILLIGRAM(500MG IN THE EVENING)
     Route: 048
     Dates: start: 20230419

REACTIONS (2)
  - Deafness unilateral [Recovering/Resolving]
  - Ear pain [Not Recovered/Not Resolved]

NARRATIVE: CASE EVENT DATE: 20230420
